FAERS Safety Report 18564537 (Version 11)
Quarter: 2022Q3

REPORT INFORMATION
  Report Type: Other
  Country: DE (occurrence: None)
  Receive Date: 20201201
  Receipt Date: 20220907
  Transmission Date: 20221026
  Serious: Yes (Other)
  Sender: FDA-Public Use
  Company Number: DE-ROCHE-2723215

PATIENT
  Age: 22 Year
  Sex: Male

DRUGS (4)
  1. MABTHERA [Suspect]
     Active Substance: RITUXIMAB
     Indication: Atypical haemolytic uraemic syndrome
     Dosage: THREE CYCLES
     Route: 042
     Dates: start: 201505, end: 201506
  2. MABTHERA [Suspect]
     Active Substance: RITUXIMAB
     Indication: Immune thrombocytopenia
  3. RIBAVIRIN [Suspect]
     Active Substance: RIBAVIRIN
     Indication: Hepatitis E
     Route: 065
  4. RIBAVIRIN [Suspect]
     Active Substance: RIBAVIRIN
     Dosage: 200-400 MG PER DAY
     Route: 065

REACTIONS (5)
  - Hepatitis E [Unknown]
  - Suspected transmission of an infectious agent via product [Unknown]
  - Leukopenia [Unknown]
  - Anaemia [Unknown]
  - Off label use [Unknown]
